FAERS Safety Report 8864185 (Version 1)
Quarter: 2012Q4

REPORT INFORMATION
  Report Type: 
  Country: US (occurrence: US)
  Receive Date: 20121024
  Receipt Date: 20121024
  Transmission Date: 20130627
  Serious: No
  Sender: FDA-Public Use
  Company Number: US-AMGEN-USASP2011066024

PATIENT
  Age: 66 Year
  Sex: Male
  Weight: 90.7 kg

DRUGS (4)
  1. ENBREL [Suspect]
     Indication: PRODUCT USED FOR UNKNOWN INDICATION
     Dosage: 50 mg, qwk
  2. PROSCAR [Concomitant]
     Dosage: 5 mg, UNK
  3. HALOBETASOL PROP [Concomitant]
  4. VECTICAL [Concomitant]

REACTIONS (2)
  - Erythema [Unknown]
  - Pruritus [Unknown]
